FAERS Safety Report 17636142 (Version 4)
Quarter: 2021Q2

REPORT INFORMATION
  Report Type: Spontaneous
  Country: CA (occurrence: CA)
  Receive Date: 20200407
  Receipt Date: 20210629
  Transmission Date: 20210716
  Serious: Yes (Hospitalization)
  Sender: FDA-Public Use
  Company Number: CA-009507513-2004CAN001312

PATIENT
  Age: 56 Year
  Sex: Female

DRUGS (29)
  1. METOCLOPRAMIDE HYDROCHLORIDE. [Suspect]
     Active Substance: METOCLOPRAMIDE HYDROCHLORIDE
     Indication: VOMITING
     Dosage: UNK
     Route: 065
  2. METOCLOPRAMIDE HYDROCHLORIDE. [Suspect]
     Active Substance: METOCLOPRAMIDE HYDROCHLORIDE
     Dosage: UNK
     Route: 065
  3. PRUCALOPRIDE [Suspect]
     Active Substance: PRUCALOPRIDE
     Indication: NAUSEA
  4. DIMENHYDRINATE. [Suspect]
     Active Substance: DIMENHYDRINATE
     Indication: VOMITING
     Dosage: UNK
     Route: 065
  5. DOMPERIDONE [Suspect]
     Active Substance: DOMPERIDONE
     Indication: VOMITING
     Dosage: UNK
     Route: 065
  6. ONDANSETRON [Suspect]
     Active Substance: ONDANSETRON
     Indication: VOMITING
     Dosage: UNK; DOSAGE FORM NOT SPECIFIED
     Route: 065
  7. PANTOPRAZOLE [Suspect]
     Active Substance: PANTOPRAZOLE
     Indication: VOMITING
     Dosage: UNK; DOSAGE FORM NOT SPECIFIED
     Route: 065
  8. DIMENHYDRINATE. [Suspect]
     Active Substance: DIMENHYDRINATE
     Indication: NAUSEA
     Dosage: DOSAGE FORM NOT SPECIFIED
     Route: 065
  9. METOCLOPRAMIDE HYDROCHLORIDE. [Suspect]
     Active Substance: METOCLOPRAMIDE HYDROCHLORIDE
     Indication: NAUSEA
  10. PANTOPRAZOLE [Suspect]
     Active Substance: PANTOPRAZOLE
     Indication: NAUSEA
     Dosage: UNK; DOSAGE FORM UNKNOWN
     Route: 065
  11. PROCHLORPERAZINE. [Suspect]
     Active Substance: PROCHLORPERAZINE
     Indication: NAUSEA
  12. PANTOPRAZOLE SODIUM SESQUIHYDRATE [Suspect]
     Active Substance: PANTOPRAZOLE SODIUM
     Indication: VOMITING
     Dosage: UNK
     Route: 065
  13. EMEND [Suspect]
     Active Substance: APREPITANT
     Indication: NAUSEA
     Dosage: UNK
     Route: 065
  14. DOMPERIDONE [Suspect]
     Active Substance: DOMPERIDONE
     Indication: NAUSEA
  15. METOCLOPRAMIDE HYDROCHLORIDE. [Suspect]
     Active Substance: METOCLOPRAMIDE HYDROCHLORIDE
     Indication: NAUSEA
     Dosage: UNK
     Route: 065
  16. NABILONE [Suspect]
     Active Substance: NABILONE
     Indication: VOMITING
     Dosage: 0.5 MILLIGRAM, 2 EVERY 1 DAYS
     Route: 065
  17. OLANZAPINE. [Suspect]
     Active Substance: OLANZAPINE
     Indication: NAUSEA
  18. NABILONE [Suspect]
     Active Substance: NABILONE
     Indication: NAUSEA
     Dosage: UNK
     Route: 065
  19. ONDANSETRON [Suspect]
     Active Substance: ONDANSETRON
     Indication: NAUSEA
     Dosage: 8.0 MILLIGRAM, 2 EVERY 1 DAYS; DOSAGE FORM NOT SPECIFIED
  20. PRUCALOPRIDE [Suspect]
     Active Substance: PRUCALOPRIDE
     Indication: VOMITING
     Dosage: UNK
     Route: 065
  21. PRUCALOPRIDE [Suspect]
     Active Substance: PRUCALOPRIDE
     Indication: NAUSEA
  22. PANTOPRAZOLE SODIUM SESQUIHYDRATE [Suspect]
     Active Substance: PANTOPRAZOLE SODIUM
     Indication: NAUSEA
     Route: 065
  23. EMEND [Suspect]
     Active Substance: APREPITANT
     Indication: VOMITING
     Dosage: 80 MILLIGRAM, 1 EVERY 1 DAYS
     Route: 065
  24. METOCLOPRAMIDE HYDROCHLORIDE. [Suspect]
     Active Substance: METOCLOPRAMIDE HYDROCHLORIDE
     Indication: VOMITING
  25. PROCHLORPERAZINE. [Suspect]
     Active Substance: PROCHLORPERAZINE
     Indication: VOMITING
     Dosage: UNK; DOSAGE FORM NOT SPECIFIED
     Route: 065
  26. DOMPERIDONE [Suspect]
     Active Substance: DOMPERIDONE
     Indication: NAUSEA
     Dosage: UNK
     Route: 065
  27. DOMPERIDONE [Suspect]
     Active Substance: DOMPERIDONE
     Indication: VOMITING
  28. OLANZAPINE. [Suspect]
     Active Substance: OLANZAPINE
     Indication: VOMITING
     Dosage: UNK; DOSAGE FORM NOT SPECIFIED
     Route: 065
  29. PRUCALOPRIDE [Suspect]
     Active Substance: PRUCALOPRIDE
     Indication: VOMITING
     Dosage: UNK
     Route: 065

REACTIONS (2)
  - Off label use [Unknown]
  - Drug ineffective for unapproved indication [Unknown]
